FAERS Safety Report 4389303-7 (Version None)
Quarter: 2004Q2

REPORT INFORMATION
  Report Type: 
  Country: None (occurrence: None)
  Receive Date: 20040628
  Receipt Date: 20040617
  Transmission Date: 20050107
  Serious: Yes (Death)
  Sender: FDA-Public Use
  Company Number: KII-1999-0001444

PATIENT
  Age: 63 Year
  Sex: Male

DRUGS (3)
  1. OXYCONTIN [Suspect]
     Dosage: 40 MG, Q12H
  2. OXYCODONE HCL [Suspect]
     Dosage: 5 MG, Q6H PRN
  3. VALIUM [Suspect]
     Dosage: 10 MG, TID PRN

REACTIONS (3)
  - CARDIOVASCULAR DISORDER [None]
  - MYOCARDIAL INFARCTION [None]
  - OVERDOSE [None]
